FAERS Safety Report 8008332-5 (Version None)
Quarter: 2011Q4

REPORT INFORMATION
  Report Type: 
  Country: None (occurrence: None)
  Receive Date: 20111227
  Receipt Date: 20111214
  Transmission Date: 20120403
  Serious: Yes (Other)
  Sender: FDA-Public Use
  Company Number: PHHY2011BR109725

PATIENT
  Age: 39 Year
  Sex: Male

DRUGS (2)
  1. CARBAMAZEPINE [Suspect]
     Indication: ALCOHOL WITHDRAWAL SYNDROME
     Dosage: UNK
  2. FLUOXETINE [Suspect]
     Indication: ALCOHOL WITHDRAWAL SYNDROME
     Dosage: UNK

REACTIONS (14)
  - ORAL DISCOMFORT [None]
  - SKIN HYPERPIGMENTATION [None]
  - ORAL MUCOSAL ERYTHEMA [None]
  - PIGMENTATION DISORDER [None]
  - LICHEN PLANUS [None]
  - HYPERKERATOSIS [None]
  - EXCESSIVE GRANULATION TISSUE [None]
  - LYMPHOCYTIC INFILTRATION [None]
  - LEUKOPLAKIA ORAL [None]
  - MUCOSAL ULCERATION [None]
  - ACANTHOSIS [None]
  - LICHENOID KERATOSIS [None]
  - OROPHARYNGEAL BLISTERING [None]
  - ORAL PAIN [None]
